FAERS Safety Report 4680119-0 (Version None)
Quarter: 2005Q2

REPORT INFORMATION
  Report Type: 
  Country: None (occurrence: None)
  Receive Date: 20050602
  Receipt Date: 20050524
  Transmission Date: 20051028
  Serious: Yes (Death)
  Sender: FDA-Public Use
  Company Number: RO-SANOFI-SYNTHELABO-A01200503533

PATIENT
  Sex: Male

DRUGS (6)
  1. PLAVIX [Suspect]
     Indication: MYOCARDIAL INFARCTION
     Route: 048
     Dates: start: 20040706
  2. ACETYLSALICYLIC ACID [Concomitant]
     Indication: MYOCARDIAL INFARCTION
     Route: 048
  3. METOPROLOL [Concomitant]
     Indication: MYOCARDIAL INFARCTION
     Route: 048
  4. PERINDOPRIL [Concomitant]
     Indication: CARDIAC FAILURE
     Route: 048
  5. TRIMETAZIDINE [Concomitant]
     Indication: MYOCARDIAL INFARCTION
     Route: 048
  6. ISOSORBIDE DINITRATE [Concomitant]
     Indication: MYOCARDIAL INFARCTION
     Route: 048

REACTIONS (1)
  - SUDDEN DEATH [None]
